FAERS Safety Report 12286591 (Version 1)
Quarter: 2016Q2

REPORT INFORMATION
  Report Type: Spontaneous
  Country: FR (occurrence: FR)
  Receive Date: 20160420
  Receipt Date: 20160420
  Transmission Date: 20160815
  Serious: Yes (Hospitalization)
  Sender: FDA-Public Use
  Company Number: FR-009507513-1604FRA011035

PATIENT
  Age: 5 Year
  Sex: Female
  Weight: 17 kg

DRUGS (2)
  1. BACTRIM [Suspect]
     Active Substance: SULFAMETHOXAZOLE\TRIMETHOPRIM
     Indication: NEUROBLASTOMA
     Dosage: 10 ML, TIW
     Route: 048
     Dates: start: 201503, end: 20160226
  2. TEMODAL [Suspect]
     Active Substance: TEMOZOLOMIDE
     Dosage: UNK, 5 DAYS EVERY 25 DAYS DOSE UNSPECIFED FOR ONE YEAR
     Route: 042
     Dates: start: 201503, end: 20160205

REACTIONS (7)
  - Rash [Recovering/Resolving]
  - Aspartate aminotransferase increased [Recovering/Resolving]
  - Serum ferritin increased [Not Recovered/Not Resolved]
  - Eosinophilia [Recovered/Resolved]
  - Pyrexia [Not Recovered/Not Resolved]
  - Pruritus [Recovered/Resolved]
  - Thrombocytopenia [Not Recovered/Not Resolved]

NARRATIVE: CASE EVENT DATE: 20160229
